FAERS Safety Report 5810366-3 (Version None)
Quarter: 2008Q3

REPORT INFORMATION
  Report Type: 
  Country: None (occurrence: None)
  Receive Date: 20080715
  Receipt Date: 20080704
  Transmission Date: 20090109
  Serious: Yes (Hospitalization, Other)
  Sender: FDA-Public Use
  Company Number: CA-ELI_LILLY_AND_COMPANY-CA200805005276

PATIENT
  Age: 85 Year
  Sex: Female

DRUGS (6)
  1. FORTEO [Suspect]
     Indication: OSTEOPOROSIS
     Dosage: 20 UG, DAILY (1/D)
     Route: 058
     Dates: start: 20070825, end: 20080526
  2. FORTEO [Suspect]
     Dosage: 20 UG, DAILY (1/D)
     Route: 058
     Dates: start: 20080603
  3. ASAPHEN [Concomitant]
  4. FOLIC ACID [Concomitant]
  5. CALCIUM                                 /N/A/ [Concomitant]
  6. VITAMIN D [Concomitant]

REACTIONS (2)
  - FALL [None]
  - PELVIC FRACTURE [None]
